FAERS Safety Report 14171673 (Version 2)
Quarter: 2018Q2

REPORT INFORMATION
  Report Type: Spontaneous
  Country: US (occurrence: US)
  Receive Date: 20171108
  Receipt Date: 20180420
  Transmission Date: 20180711
  Serious: No
  Sender: FDA-Public Use
  Company Number: US-LUNDBECK-DKLU2038960

PATIENT
  Age: 2 Year
  Sex: Female

DRUGS (4)
  1. SABRIL [Suspect]
     Active Substance: VIGABATRIN
     Indication: FOCAL DYSCOGNITIVE SEIZURES
     Route: 065
     Dates: start: 20170725
  2. SABRIL [Suspect]
     Active Substance: VIGABATRIN
     Route: 048
     Dates: start: 20171024
  3. SABRIL [Suspect]
     Active Substance: VIGABATRIN
     Route: 048
     Dates: start: 20171024
  4. SABRIL [Suspect]
     Active Substance: VIGABATRIN
     Route: 065
     Dates: start: 20170725

REACTIONS (2)
  - Psychomotor hyperactivity [Unknown]
  - Insomnia [Not Recovered/Not Resolved]

NARRATIVE: CASE EVENT DATE: 201707
